FAERS Safety Report 13070431 (Version 1)
Quarter: 2016Q4

REPORT INFORMATION
  Report Type: Spontaneous
  Country: US (occurrence: US)
  Receive Date: 20161229
  Receipt Date: 20161229
  Transmission Date: 20170207
  Serious: No
  Sender: FDA-Public Use
  Company Number: PHEH2016US033831

PATIENT
  Age: 63 Year
  Sex: Female

DRUGS (1)
  1. VOTRIENT [Suspect]
     Active Substance: PAZOPANIB HYDROCHLORIDE
     Indication: RENAL CANCER METASTATIC
     Dosage: 4 DF, QD
     Route: 048
     Dates: start: 20161119

REACTIONS (2)
  - Sinus disorder [Unknown]
  - Cough [Unknown]

NARRATIVE: CASE EVENT DATE: 20161218
